FAERS Safety Report 20072297 (Version 1)
Quarter: 2021Q4

REPORT INFORMATION
  Report Type: Spontaneous
  Country: US (occurrence: US)
  Receive Date: 20211116
  Receipt Date: 20211116
  Transmission Date: 20220303
  Serious: No
  Sender: FDA-Public Use
  Company Number: US-JNJFOC-20211048657

PATIENT
  Age: 49 Year
  Sex: Female
  Weight: 103.51 kg

DRUGS (12)
  1. TYLENOL [Suspect]
     Active Substance: ACETAMINOPHEN
     Indication: Product used for unknown indication
     Route: 065
  2. IBUPROFEN [Suspect]
     Active Substance: IBUPROFEN
     Indication: Product used for unknown indication
     Route: 065
  3. HUMIRA [Suspect]
     Active Substance: ADALIMUMAB
     Indication: Psoriatic arthropathy
     Dosage: CITRATE FREE (40 MG,1 IN 2 WK)
     Route: 058
     Dates: start: 20211011
  4. HUMIRA [Suspect]
     Active Substance: ADALIMUMAB
     Indication: Ankylosing spondylitis
  5. HUMIRA [Suspect]
     Active Substance: ADALIMUMAB
     Indication: Psoriasis
  6. OTEZLA [Suspect]
     Active Substance: APREMILAST
     Indication: Psoriatic arthropathy
     Route: 065
  7. COVID-19 VACCINE [Concomitant]
     Indication: Immunisation
     Dosage: (1 IN 1 ONCE)
     Route: 030
     Dates: start: 202108, end: 202108
  8. COVID-19 VACCINE [Concomitant]
     Dosage: (1 IN 1 ONCE)
     Route: 030
     Dates: start: 20210901, end: 20210901
  9. GLUCOSAMINE [Concomitant]
     Active Substance: GLUCOSAMINE
     Indication: Arthralgia
     Route: 065
  10. CIMETIDINE [Concomitant]
     Active Substance: CIMETIDINE
     Indication: Gastrooesophageal reflux disease
     Route: 065
  11. BENADRYL [Concomitant]
     Active Substance: DIPHENHYDRAMINE HYDROCHLORIDE
     Indication: Seasonal allergy
     Route: 065
  12. DIMETHYL SULFONE [Concomitant]
     Active Substance: DIMETHYL SULFONE
     Indication: Arthralgia
     Route: 065

REACTIONS (6)
  - Throat irritation [Recovered/Resolved]
  - Nasal discomfort [Recovered/Resolved]
  - Vomiting [Recovered/Resolved]
  - Nausea [Not Recovered/Not Resolved]
  - Headache [Not Recovered/Not Resolved]
  - Abdominal pain [Not Recovered/Not Resolved]

NARRATIVE: CASE EVENT DATE: 20211011
